FAERS Safety Report 12378566 (Version 1)
Quarter: 2016Q2

REPORT INFORMATION
  Report Type: Spontaneous
  Country: MX (occurrence: MX)
  Receive Date: 20160517
  Receipt Date: 20160517
  Transmission Date: 20160815
  Serious: Yes (Hospitalization)
  Sender: FDA-Public Use
  Company Number: MX-VALIDUS PHARMACEUTICALS LLC-MX-2016VAL000371

PATIENT
  Sex: Male

DRUGS (5)
  1. PANTOZOL [Concomitant]
     Active Substance: PANTOPRAZOLE SODIUM
     Indication: GASTRITIS
     Dosage: UNK
  2. GLIBENCLAMIDE [Concomitant]
     Active Substance: GLYBURIDE
     Indication: TYPE 2 DIABETES MELLITUS
     Dosage: UNK
     Route: 048
     Dates: end: 201504
  3. APROVASC [Suspect]
     Active Substance: AMLODIPINE BESYLATE\IRBESARTAN
     Indication: HYPERTENSION
     Dosage: 1 DF, BID
     Route: 048
     Dates: start: 2013
  4. TRAJENTA DUO [Concomitant]
     Active Substance: LINAGLIPTIN\METFORMIN HYDROCHLORIDE
     Indication: TYPE 2 DIABETES MELLITUS
     Dosage: UNK
     Dates: start: 2011
  5. LASIX [Suspect]
     Active Substance: FUROSEMIDE
     Indication: OEDEMA
     Dosage: 1 DF, QD
     Route: 048
     Dates: start: 201504, end: 201507

REACTIONS (7)
  - Gastroenteritis [Recovered/Resolved]
  - Oedema [Recovered/Resolved]
  - Nephropathy [Not Recovered/Not Resolved]
  - Pollakiuria [Recovered/Resolved]
  - Vomiting [Recovered/Resolved]
  - Groin pain [Recovered/Resolved]
  - Diarrhoea [Recovered/Resolved]

NARRATIVE: CASE EVENT DATE: 2014
